FAERS Safety Report 20460094 (Version 1)
Quarter: 2022Q1

REPORT INFORMATION
  Report Type: Spontaneous
  Country: US (occurrence: US)
  Receive Date: 20220211
  Receipt Date: 20220211
  Transmission Date: 20220424
  Serious: Yes (Hospitalization, Other)
  Sender: FDA-Public Use
  Company Number: US-JNJFOC-20220213084

PATIENT
  Age: 7 Year
  Sex: Male
  Weight: 19 kg

DRUGS (2)
  1. XARELTO [Suspect]
     Active Substance: RIVAROXABAN
     Indication: Intracardiac thrombus
     Route: 048
  2. ASPIRIN [Suspect]
     Active Substance: ASPIRIN
     Indication: Intracardiac thrombus
     Route: 065

REACTIONS (4)
  - Coronary artery thrombosis [Recovering/Resolving]
  - Off label use [Unknown]
  - Product use issue [Unknown]
  - Product use in unapproved indication [Unknown]
